FAERS Safety Report 16986648 (Version 2)
Quarter: 2019Q4

REPORT INFORMATION
  Report Type: Report from Study
  Country: JP (occurrence: JP)
  Receive Date: 20191103
  Receipt Date: 20191201
  Transmission Date: 20200122
  Serious: Yes (Hospitalization)
  Sender: FDA-Public Use
  Company Number: JP-AMGEN-JPNCT2019181426

PATIENT
  Sex: Male

DRUGS (1)
  1. DARBEPOETIN ALFA [Suspect]
     Active Substance: DARBEPOETIN ALFA
     Indication: NEPHROGENIC ANAEMIA
     Dosage: 30 MILLIGRAM
     Route: 042
     Dates: start: 20181015, end: 20190923

REACTIONS (1)
  - Myelopathy [Unknown]

NARRATIVE: CASE EVENT DATE: 20191001
